FAERS Safety Report 17741427 (Version 1)
Quarter: 2020Q2

REPORT INFORMATION
  Report Type: Spontaneous
  Country: US (occurrence: US)
  Receive Date: 20200504
  Receipt Date: 20200504
  Transmission Date: 20200714
  Serious: No
  Sender: FDA-Public Use
  Company Number: US-BAUSCH-BL-2020-011714

PATIENT
  Age: 79 Year
  Sex: Female

DRUGS (1)
  1. DILTIAZEM HYDROCHLORIDE EXTENDED-RELEASE CAPSULES, USP [Suspect]
     Active Substance: DILTIAZEM HYDROCHLORIDE
     Indication: HYPERTENSION
     Route: 048

REACTIONS (8)
  - Product substitution issue [Unknown]
  - Balance disorder [Unknown]
  - Fall [Unknown]
  - Drug intolerance [Unknown]
  - Dizziness [Unknown]
  - Visual impairment [Unknown]
  - Peripheral swelling [Unknown]
  - Chest discomfort [Unknown]
